FAERS Safety Report 8221654-8 (Version None)
Quarter: 2012Q1

REPORT INFORMATION
  Report Type: 
  Country: None (occurrence: None)
  Receive Date: 20120320
  Receipt Date: 20120312
  Transmission Date: 20120608
  Serious: Yes (Hospitalization, Other)
  Sender: FDA-Public Use
  Company Number: ES-JNJFOC-20120308053

PATIENT
  Age: 66 Year
  Sex: Male

DRUGS (6)
  1. PREGABALIN [Concomitant]
     Route: 065
  2. FENTANYL [Suspect]
     Route: 062
  3. METAMIZOL [Concomitant]
     Route: 065
  4. FENTANYL [Suspect]
     Route: 062
  5. FENTANYL [Suspect]
     Indication: CANCER PAIN
     Route: 062
  6. FENTANYL [Concomitant]
     Route: 060

REACTIONS (2)
  - DYSPNOEA [None]
  - INADEQUATE ANALGESIA [None]
